FAERS Safety Report 26219389 (Version 1)
Quarter: 2025Q4

REPORT INFORMATION
  Report Type: Spontaneous
  Country: US (occurrence: US)
  Receive Date: 20251231
  Receipt Date: 20251231
  Transmission Date: 20260119
  Serious: No
  Sender: GALDERMA
  Company Number: US-GALDERMA-US2025026635

PATIENT

DRUGS (5)
  1. NEMLUVIO [Suspect]
     Active Substance: NEMOLIZUMAB-ILTO
     Indication: Dermatitis atopic
     Dosage: 60 MILLIGRAM (LOADING DOSE, EVERY 4 WEEKS)
     Route: 058
     Dates: start: 20250904, end: 20250904
  2. NEMLUVIO [Suspect]
     Active Substance: NEMOLIZUMAB-ILTO
     Dosage: UNK (EVERY 4 WEEKS)
     Route: 058
     Dates: start: 20251001, end: 20251001
  3. NEMLUVIO [Suspect]
     Active Substance: NEMOLIZUMAB-ILTO
     Dosage: UNK (EVERY 4 WEEKS)
     Route: 058
     Dates: start: 20251028, end: 20251028
  4. NEMLUVIO [Suspect]
     Active Substance: NEMOLIZUMAB-ILTO
     Dosage: UNK (EVERY 3 WEEKS)
     Route: 058
     Dates: start: 20251118, end: 20251118
  5. NEMLUVIO [Suspect]
     Active Substance: NEMOLIZUMAB-ILTO
     Dosage: UNK (EVERY 3 WEEKS)
     Route: 058
     Dates: start: 20251210, end: 20251210

REACTIONS (3)
  - Dermatitis atopic [Recovered/Resolved]
  - Off label use [Recovered/Resolved]
  - Intentional overdose [Recovered/Resolved]

NARRATIVE: CASE EVENT DATE: 20250101
